FAERS Safety Report 24315649 (Version 1)
Quarter: 2024Q3

REPORT INFORMATION
  Report Type: Spontaneous
  Country: US (occurrence: None)
  Receive Date: 20240912
  Receipt Date: 20240912
  Transmission Date: 20241016
  Serious: Yes (Disabling, Other)
  Sender: Public
  Company Number: None

PATIENT
  Age: 55 Year
  Sex: Female

DRUGS (1)
  1. CICLOPIROX [Suspect]
     Active Substance: CICLOPIROX

REACTIONS (6)
  - Rash [None]
  - Rash [None]
  - Nail discolouration [None]
  - Pain in extremity [None]
  - Nail hypertrophy [None]
  - Onychomadesis [None]

NARRATIVE: CASE EVENT DATE: 20240115
